FAERS Safety Report 11326519 (Version 1)
Quarter: 2015Q3

REPORT INFORMATION
  Report Type: Spontaneous
  Country: CN (occurrence: None)
  Receive Date: 20150729
  Receipt Date: 20150729
  Transmission Date: 20151125
  Serious: Yes (Life-Threatening, Hospitalization)
  Sender: FDA-Public Use
  Company Number: CN-2015VAL000480

PATIENT
  Age: 78 Year
  Sex: Male
  Weight: 60 kg

DRUGS (1)
  1. LOTENSIN [Suspect]
     Active Substance: BENAZEPRIL HYDROCHLORIDE
     Indication: BLOOD PRESSURE INCREASED
     Route: 048
     Dates: start: 20150306, end: 20150306

REACTIONS (6)
  - Rash maculo-papular [None]
  - Hypotension [None]
  - Oxygen saturation decreased [None]
  - Fatigue [None]
  - Rash [None]
  - Visual impairment [None]

NARRATIVE: CASE EVENT DATE: 20150306
